FAERS Safety Report 6844870-6 (Version None)
Quarter: 2010Q3

REPORT INFORMATION
  Report Type: 
  Country: None (occurrence: None)
  Receive Date: 20100715
  Receipt Date: 20100715
  Transmission Date: 20110219
  Serious: Yes (Hospitalization)
  Sender: FDA-Public Use
  Company Number: US-BAYER-201014563NA

PATIENT
  Age: 25 Year
  Sex: Female
  Weight: 100 kg

DRUGS (17)
  1. YASMIN [Suspect]
     Indication: PRODUCT USED FOR UNKNOWN INDICATION
     Dosage: PHARMACY RECORDS: 18-DEC-2003 TO 18-FEB-2007
     Route: 048
     Dates: start: 20030301, end: 20080701
  2. OCELLA [Suspect]
     Indication: PRODUCT USED FOR UNKNOWN INDICATION
     Dosage: UNK
     Route: 048
     Dates: start: 20030301, end: 20080701
  3. ALBUTEROL [Concomitant]
     Dosage: ^(200 PUFFS) 17GM INHALE 2 PUFFS UTD WITH SPACER PO 010 AND PRN 04/21/2006^
     Route: 055
     Dates: start: 20020601
  4. OMEPRAZOLE [Concomitant]
     Dosage: 08-FEB-2008
     Route: 048
  5. OMEPRAZOLE [Concomitant]
     Route: 048
  6. HYDROCODONE BITARTRATE AND ACETAMINOPHEN [Concomitant]
     Indication: PAIN
     Dosage: 5MG/500MG. 28-FEB-2008. EVERY 4 TO 6 HOURS
     Route: 048
  7. HYDROCODONE BITARTRATE AND ACETAMINOPHEN [Concomitant]
     Dosage: 5MG/500MG. 12-FEB-2008.
     Route: 048
  8. CHANTIX [Concomitant]
     Dosage: 21-MAR-2008
     Route: 065
  9. PROAIR HFA [Concomitant]
     Dosage: (200 PUFFS)  TWO PUFFS EVERY FOUR HOURS PER NEEDED 21-MAR-2008
     Route: 055
  10. LAMISIL [Concomitant]
     Dosage: 24-JAN-2007
     Route: 048
  11. NAPROXEN [Concomitant]
     Dosage: 07-JUL-2006
     Route: 065
  12. AZITHROMYCIN [Concomitant]
     Dosage: 27-APR-2006
     Route: 065
  13. AZITHROMYCIN [Concomitant]
     Dosage: TWO TABLETS AT ONCE
  14. MERIDIA [Concomitant]
     Dosage: 06-AUG-2004, 25-OCT-2005, 27-OCT-2005, 01-NOV-2005, 2005, 07-JUL-2006
     Route: 065
  15. AMOXICILLIN AND CLAVULANATE POTASSIUM [Concomitant]
     Dosage: UNIT DOSE: 875 MG
     Route: 048
  16. PCS [Concomitant]
     Dosage: 31-JAN-2004
     Route: 065
  17. PREDNISONE [Concomitant]
     Dosage: 21-APR-2006
     Route: 065

REACTIONS (2)
  - GALLBLADDER DISORDER [None]
  - MENTAL DISORDER [None]
